FAERS Safety Report 9177687 (Version 1)
Quarter: 2013Q1

REPORT INFORMATION
  Report Type: Spontaneous
  Country: IT (occurrence: None)
  Receive Date: 20130319
  Receipt Date: 20130319
  Transmission Date: 20140127
  Serious: Yes (Hospitalization)
  Sender: FDA-Public Use
  Company Number: AUR-APL-2013-02234

PATIENT
  Age: 81 Year
  Sex: Female

DRUGS (3)
  1. LEVOFLOXACIN [Suspect]
     Indication: PHLEBITIS
     Route: 048
     Dates: start: 20130219, end: 20130219
  2. LEVOFLOXACIN [Suspect]
     Indication: PRODUCT USED FOR UNKNOWN INDICATION
     Route: 048
     Dates: start: 20130219, end: 20130219
  3. ENOXAPARINA SODICA (ENOXAPARIN SODIUM) [Concomitant]

REACTIONS (2)
  - Hypoglycaemia [None]
  - Sopor [None]
